FAERS Safety Report 19200709 (Version 1)
Quarter: 2021Q2

REPORT INFORMATION
  Report Type: Spontaneous
  Country: US (occurrence: US)
  Receive Date: 20210430
  Receipt Date: 20210430
  Transmission Date: 20210717
  Serious: No
  Sender: FDA-Public Use
  Company Number: None

PATIENT
  Age: 52 Year
  Sex: Female
  Weight: 53.1 kg

DRUGS (1)
  1. LANSOPRAZOLE. [Suspect]
     Active Substance: LANSOPRAZOLE
     Indication: ABDOMINAL PAIN UPPER
     Dosage: ?          QUANTITY:6 CAPSULE(S);?
     Route: 048
     Dates: start: 20210408, end: 20210428

REACTIONS (6)
  - Abdominal pain upper [None]
  - Dizziness [None]
  - Fatigue [None]
  - Toxicity to various agents [None]
  - Product contamination physical [None]
  - Hypoaesthesia [None]

NARRATIVE: CASE EVENT DATE: 20210430
